FAERS Safety Report 7753526-7 (Version None)
Quarter: 2011Q3

REPORT INFORMATION
  Report Type: 
  Country: None (occurrence: None)
  Receive Date: 20110913
  Receipt Date: 20110830
  Transmission Date: 20111222
  Serious: Yes (Hospitalization)
  Sender: FDA-Public Use
  Company Number: 1000023640

PATIENT
  Age: 99 Year
  Sex: Female

DRUGS (6)
  1. TERCIAN (CYAMEMAZINE) (DROPS) [Suspect]
     Dosage: 6 MG (6 MG, 1 IN 1 D), ORAL
     Route: 048
     Dates: start: 20070101
  2. CERIS (TROSPIUM CHLORIDE) (TABLETS) (TROSPIUM CHLORIDE) [Concomitant]
  3. MEPRONIZINE (ACEPROMETAZINE, MEPROBAMATE) (TABLETS) [Suspect]
     Dosage: 1 DF (1 DOSAGE FORMS, 1 IN 1 D), ORAL
     Route: 048
  4. LIPANTHYL (FENOFIBRATE) (FENOFIBRATE) [Concomitant]
  5. ESCITALOPRAM [Suspect]
     Dosage: 1 IN 1 D
  6. DOLIPRANE (PARACETAMOL) (TABLETS) (PARACETAMOL) [Concomitant]

REACTIONS (3)
  - BLOOD CREATINE PHOSPHOKINASE INCREASED [None]
  - EXCORIATION [None]
  - FALL [None]
